FAERS Safety Report 8780496 (Version 1)
Quarter: 2012Q4

REPORT INFORMATION
  Report Type: Spontaneous
  Country: US (occurrence: None)
  Receive Date: 20120906
  Receipt Date: 20120906
  Transmission Date: 20130627
  Serious: Yes (Other)
  Sender: FDA-Public Use
  Company Number: None

PATIENT
  Age: 76 Year
  Sex: Female
  Weight: 61.24 kg

DRUGS (1)
  1. ZOLOFT [Suspect]

REACTIONS (6)
  - Tremor [None]
  - Depression [None]
  - Anxiety [None]
  - Aphagia [None]
  - Fatigue [None]
  - Influenza like illness [None]
